FAERS Safety Report 8607559-9 (Version None)
Quarter: 2012Q3

REPORT INFORMATION
  Report Type: 
  Country: None (occurrence: None)
  Receive Date: 20120821
  Receipt Date: 20120807
  Transmission Date: 20120928
  Serious: Yes (Hospitalization, Other)
  Sender: FDA-Public Use
  Company Number: IT-COVIDIEN/TYCO HEALTHCARE/MALLINCKRODT-T201203033

PATIENT
  Age: 61 Year
  Sex: Male

DRUGS (4)
  1. HYDROMORPHONE HYDROCHLORIDE [Suspect]
     Dosage: 16 MG QD
     Route: 048
  2. METFORMINA GLIBENCLAMIDE SANDOZ [Suspect]
     Indication: TYPE 2 DIABETES MELLITUS
     Dosage: 400 MG/2.5 MG BID
     Route: 048
  3. NADROPARIN [Suspect]
     Dosage: 5700 UI/D
     Route: 058
  4. LEVOFLOXACIN [Suspect]
     Indication: PYREXIA
     Dosage: 500 MG/DIE
     Route: 048

REACTIONS (3)
  - HYPOGLYCAEMIA [None]
  - PYREXIA [None]
  - DRUG INTERACTION [None]
